FAERS Safety Report 17040794 (Version 1)
Quarter: 2019Q4

REPORT INFORMATION
  Report Type: Report from Study
  Country: US (occurrence: US)
  Receive Date: 20191117
  Receipt Date: 20191117
  Transmission Date: 20200122
  Serious: Yes (Hospitalization, Other)
  Sender: FDA-Public Use
  Company Number: US-AUROBINDO-AUR-APL-2019-072185

PATIENT
  Age: 49 Year
  Sex: Female

DRUGS (1)
  1. DEXAMETHASONE. [Suspect]
     Active Substance: DEXAMETHASONE
     Indication: MENINGITIS PNEUMOCOCCAL
     Dosage: UNK
     Route: 065

REACTIONS (3)
  - Brain injury [Unknown]
  - Cerebral venous thrombosis [Recovered/Resolved]
  - Pyrexia [Unknown]
